FAERS Safety Report 15683065 (Version 1)
Quarter: 2018Q4

REPORT INFORMATION
  Report Type: Spontaneous
  Country: IT (occurrence: IT)
  Receive Date: 20181204
  Receipt Date: 20181204
  Transmission Date: 20190205
  Serious: Yes (Hospitalization)
  Sender: FDA-Public Use
  Company Number: IT-ACCORD-094937

PATIENT
  Age: 79 Year
  Sex: Female

DRUGS (11)
  1. FUROSEMIDE. [Suspect]
     Active Substance: FUROSEMIDE
     Indication: PRODUCT USED FOR UNKNOWN INDICATION
     Route: 048
  2. NOVONORM [Concomitant]
     Active Substance: REPAGLINIDE
  3. PANTOPAN [Concomitant]
     Active Substance: PANTOPRAZOLE SODIUM
     Route: 048
  4. METOLAZONE. [Concomitant]
     Active Substance: METOLAZONE
     Route: 048
  5. POTASSIUM CHLORIDE. [Concomitant]
     Active Substance: POTASSIUM CHLORIDE
     Route: 048
  6. ALLOPURINOL. [Concomitant]
     Active Substance: ALLOPURINOL
     Route: 048
  7. SPIROLANG [Concomitant]
     Active Substance: SPIRONOLACTONE
     Route: 048
  8. CARDIOASPIRIN [Concomitant]
     Active Substance: ASPIRIN
     Route: 048
  9. ESCITALOPRAM [Concomitant]
     Active Substance: ESCITALOPRAM OXALATE
     Route: 048
  10. BISOPROLOL MYLAN GENERICS [Concomitant]
     Route: 048
  11. ROCALTROL [Concomitant]
     Active Substance: CALCITRIOL

REACTIONS (2)
  - Asthenia [Unknown]
  - Hypokalaemic syndrome [Unknown]

NARRATIVE: CASE EVENT DATE: 20160804
